FAERS Safety Report 20823492 (Version 2)
Quarter: 2022Q2

REPORT INFORMATION
  Report Type: Spontaneous
  Country: FR (occurrence: FR)
  Receive Date: 20220513
  Receipt Date: 20220616
  Transmission Date: 20220721
  Serious: Yes (Congenital Anomaly, Other)
  Sender: FDA-Public Use
  Company Number: FR-AFSSAPS-PO20221009

PATIENT
  Sex: Female
  Weight: .488 kg

DRUGS (3)
  1. POLYETHYLENE GLYCOLS [Suspect]
     Active Substance: POLYETHYLENE GLYCOLS
     Indication: Constipation
     Dosage: 75 MILLIGRAM, ONCE A DAY
     Route: 064
     Dates: start: 20210915
  2. CLOBAZAM [Suspect]
     Active Substance: CLOBAZAM
     Indication: Epilepsy
     Dosage: 20 MILLIGRAM, ONCE A DAY
     Route: 064
     Dates: start: 20210915
  3. ATARAX [Suspect]
     Active Substance: HYDROXYZINE HYDROCHLORIDE
     Indication: Insomnia
     Dosage: 75 MILLIGRAM, ONCE A DAY
     Route: 064
     Dates: start: 20210915

REACTIONS (1)
  - Microphthalmos [Not Recovered/Not Resolved]

NARRATIVE: CASE EVENT DATE: 20220202
